FAERS Safety Report 20556750 (Version 1)
Quarter: 2022Q1

REPORT INFORMATION
  Report Type: Spontaneous
  Country: FR (occurrence: FR)
  Receive Date: 20220307
  Receipt Date: 20220307
  Transmission Date: 20220424
  Serious: Yes (Hospitalization)
  Sender: FDA-Public Use
  Company Number: FR-AFSSAPS-CN20220256

PATIENT
  Age: 91 Year
  Sex: Female
  Weight: 48.45 kg

DRUGS (2)
  1. METRONIDAZOLE [Interacting]
     Active Substance: METRONIDAZOLE
     Indication: Lung disorder
     Dosage: 1500 MILLIGRAM, ONCE A DAY (1-1-1)
     Route: 048
     Dates: start: 20220127, end: 20220129
  2. FLUINDIONE [Suspect]
     Active Substance: FLUINDIONE
     Indication: Product used for unknown indication
     Dosage: 1.5 MILLIGRAM, ONCE A DAY (0.75 CPR-0-0 TO BE ADAPTED ACCORDING TO THE INR)
     Route: 048
     Dates: end: 20220129

REACTIONS (1)
  - International normalised ratio increased [Recovered/Resolved]

NARRATIVE: CASE EVENT DATE: 20220101
